FAERS Safety Report 11757484 (Version 1)
Quarter: 2015Q4

REPORT INFORMATION
  Report Type: Spontaneous
  Country: RO (occurrence: RO)
  Receive Date: 20151120
  Receipt Date: 20151120
  Transmission Date: 20160304
  Serious: Yes (Life-Threatening, Hospitalization)
  Sender: FDA-Public Use
  Company Number: RO-ACTAVIS-2015-25248

PATIENT
  Age: 81 Year
  Sex: Female

DRUGS (1)
  1. ZOLEDRONIC ACID (UNKNOWN) [Suspect]
     Active Substance: ZOLEDRONIC ACID
     Indication: OSTEITIS DEFORMANS
     Dosage: 1 PEV EVERY FEW MONTHS
     Route: 042

REACTIONS (3)
  - Osteonecrosis of jaw [Unknown]
  - Sepsis [Unknown]
  - Multi-organ failure [Recovering/Resolving]
